FAERS Safety Report 20655853 (Version 1)
Quarter: 2022Q1

REPORT INFORMATION
  Report Type: Spontaneous
  Country: CA (occurrence: CA)
  Receive Date: 20220330
  Receipt Date: 20220330
  Transmission Date: 20220423
  Serious: Yes (Other)
  Sender: FDA-Public Use
  Company Number: CA-TEVA-2022-CA-2021030

PATIENT
  Age: 32 Year
  Sex: Female

DRUGS (32)
  1. ETOPOSIDE [Suspect]
     Active Substance: ETOPOSIDE
     Indication: Angiocentric lymphoma
     Route: 042
  2. ETOPOSIDE [Suspect]
     Active Substance: ETOPOSIDE
     Route: 042
  3. ETOPOSIDE [Suspect]
     Active Substance: ETOPOSIDE
     Route: 042
  4. ETOPOSIDE [Suspect]
     Active Substance: ETOPOSIDE
     Route: 042
  5. ETOPOSIDE [Suspect]
     Active Substance: ETOPOSIDE
     Route: 042
  6. LEUCOVORIN [Suspect]
     Active Substance: LEUCOVORIN
     Indication: Angiocentric lymphoma
     Dosage: 6000 MG/M2 DAILY;
     Route: 042
  7. LEUCOVORIN [Suspect]
     Active Substance: LEUCOVORIN
     Dosage: 6000 MG/M2 DAILY;
     Route: 042
  8. CISPLATIN [Suspect]
     Active Substance: CISPLATIN
     Indication: Angiocentric lymphoma
     Route: 042
  9. CISPLATIN [Suspect]
     Active Substance: CISPLATIN
     Route: 042
  10. CISPLATIN [Suspect]
     Active Substance: CISPLATIN
     Route: 042
  11. DEXAMETHASONE [Suspect]
     Active Substance: DEXAMETHASONE
     Indication: Angiocentric lymphoma
     Route: 065
  12. DEXAMETHASONE [Suspect]
     Active Substance: DEXAMETHASONE
     Route: 065
  13. DEXAMETHASONE [Suspect]
     Active Substance: DEXAMETHASONE
     Dosage: 40 MILLIGRAM DAILY;
     Route: 065
  14. DEXAMETHASONE [Suspect]
     Active Substance: DEXAMETHASONE
     Dosage: 40 MILLIGRAM DAILY;
     Route: 065
  15. DEXAMETHASONE [Suspect]
     Active Substance: DEXAMETHASONE
     Dosage: 40 MILLIGRAM DAILY;
     Route: 065
  16. IFOSFAMIDE [Suspect]
     Active Substance: IFOSFAMIDE
     Indication: Angiocentric lymphoma
     Route: 042
  17. IFOSFAMIDE [Suspect]
     Active Substance: IFOSFAMIDE
     Route: 042
  18. IFOSFAMIDE [Suspect]
     Active Substance: IFOSFAMIDE
     Dosage: 1200 MG/M2 DAILY;
     Route: 042
  19. IFOSFAMIDE [Suspect]
     Active Substance: IFOSFAMIDE
     Dosage: 1200 MG/M2 DAILY;
     Route: 042
  20. IFOSFAMIDE [Suspect]
     Active Substance: IFOSFAMIDE
     Dosage: 1200 MG/M2 DAILY;
     Route: 042
  21. ASPARAGINASE [Suspect]
     Active Substance: ASPARAGINASE
     Indication: Angiocentric lymphoma
     Route: 030
  22. ASPARAGINASE [Suspect]
     Active Substance: ASPARAGINASE
     Route: 030
  23. MESNA [Suspect]
     Active Substance: MESNA
     Indication: Angiocentric lymphoma
     Dosage: 300 MG/M2 DAILY;
     Route: 042
  24. MESNA [Suspect]
     Active Substance: MESNA
     Dosage: 300 MG/M2 DAILY;
     Route: 042
  25. MESNA [Suspect]
     Active Substance: MESNA
     Dosage: 990 MG/M2 DAILY;
     Route: 042
  26. MESNA [Suspect]
     Active Substance: MESNA
     Dosage: 1440 MG/M2 DAILY;
     Route: 042
  27. MESNA [Suspect]
     Active Substance: MESNA
     Dosage: 1440 MG/M2 DAILY;
     Route: 042
  28. MESNA [Suspect]
     Active Substance: MESNA
     Dosage: 990 MG/M2 DAILY;
     Route: 042
  29. MESNA [Suspect]
     Active Substance: MESNA
     Dosage: 990 MG/M2 DAILY;
     Route: 042
  30. MESNA [Suspect]
     Active Substance: MESNA
     Dosage: 1440 MG/M2 DAILY;
     Route: 042
  31. METHOTREXATE SODIUM [Suspect]
     Active Substance: METHOTREXATE SODIUM
     Indication: Angiocentric lymphoma
     Route: 048
  32. METHOTREXATE SODIUM [Suspect]
     Active Substance: METHOTREXATE SODIUM
     Route: 048

REACTIONS (2)
  - T-cell lymphoma refractory [Recovered/Resolved]
  - Disease recurrence [Recovered/Resolved]
